FAERS Safety Report 5134898-9 (Version None)
Quarter: 2006Q4

REPORT INFORMATION
  Report Type: 
  Country: None (occurrence: None)
  Receive Date: 20061019
  Receipt Date: 20061002
  Transmission Date: 20070319
  Serious: Yes (Death, Hospitalization)
  Sender: FDA-Public Use
  Company Number: REM_00268_2006

PATIENT
  Age: 69 Year
  Sex: Female
  Weight: 88.6 kg

DRUGS (1)
  1. REMODULIN [Suspect]
     Indication: PULMONARY HYPERTENSION
     Dosage: 52 NG/KG/MIN CONTINUOUS IV
     Route: 042
     Dates: start: 20050719, end: 20060721

REACTIONS (7)
  - BACTERIAL SEPSIS [None]
  - ENTEROBACTER INFECTION [None]
  - HYPOTENSION [None]
  - MENTAL STATUS CHANGES [None]
  - PNEUMONIA KLEBSIELLA [None]
  - RENAL FAILURE [None]
  - STAPHYLOCOCCAL INFECTION [None]
